FAERS Safety Report 5371500-5 (Version None)
Quarter: 2007Q2

REPORT INFORMATION
  Report Type: 
  Country: None (occurrence: None)
  Receive Date: 20070615
  Receipt Date: 20070404
  Transmission Date: 20071010
  Serious: Yes (Other)
  Sender: FDA-Public Use
  Company Number: 200711403US

PATIENT
  Age: 58 Year
  Sex: Male
  Weight: 90.9 kg

DRUGS (5)
  1. LANTUS [Suspect]
     Indication: DIABETES MELLITUS
     Dosage: 60-65 U
     Dates: start: 20070227
  2. LANTUS [Suspect]
     Indication: DIABETES MELLITUS
     Dosage: 100 U
     Dates: start: 20070227
  3. COREG [Concomitant]
  4. AMLODIPINE, BENAZEPRIL HYDROCHLORIDE (LOTREL) [Concomitant]
  5. INSULIN DETEMIR (LEVEMIR) [Concomitant]

REACTIONS (3)
  - BLOOD GLUCOSE INCREASED [None]
  - DRUG INEFFECTIVE [None]
  - HYPOGLYCAEMIA [None]
